FAERS Safety Report 7091605-0 (Version None)
Quarter: 2010Q4

REPORT INFORMATION
  Report Type: 
  Country: None (occurrence: None)
  Receive Date: 20101109
  Receipt Date: 20101027
  Transmission Date: 20110411
  Serious: Yes (Other)
  Sender: FDA-Public Use
  Company Number: PH-PFIZER INC-2010136602

PATIENT
  Sex: Female

DRUGS (2)
  1. LIPITOR [Suspect]
     Dosage: 10 MG, UNK
  2. FENOFIBRATE [Interacting]
     Dosage: UNK

REACTIONS (2)
  - ALANINE AMINOTRANSFERASE INCREASED [None]
  - DRUG INTERACTION [None]
